FAERS Safety Report 8805782 (Version 1)
Quarter: 2012Q4

REPORT INFORMATION
  Report Type: 
  Country: US (occurrence: US)
  Receive Date: 20120924
  Receipt Date: 20120924
  Transmission Date: 20130627
  Serious: Yes (Death)
  Sender: FDA-Public Use
  Company Number: US-ROCHE-1124822

PATIENT
  Sex: Female

DRUGS (6)
  1. AVASTIN [Suspect]
     Indication: BREAST CANCER FEMALE
     Route: 065
     Dates: start: 20050812
  2. AVASTIN [Suspect]
     Route: 065
     Dates: start: 20050902
  3. AVASTIN [Suspect]
     Route: 065
     Dates: start: 20050923
  4. AVASTIN [Suspect]
     Route: 065
     Dates: start: 20051007
  5. AVASTIN [Suspect]
     Route: 065
     Dates: start: 20051021
  6. AVASTIN [Suspect]
     Route: 065
     Dates: start: 20051104

REACTIONS (1)
  - Death [Fatal]
